FAERS Safety Report 8916002 (Version 1)
Quarter: 2012Q4

REPORT INFORMATION
  Report Type: 
  Country: FR (occurrence: FR)
  Receive Date: 20121119
  Receipt Date: 20121119
  Transmission Date: 20130627
  Serious: Yes (Hospitalization)
  Sender: FDA-Public Use
  Company Number: FR-GLAXOSMITHKLINE-B0843310A

PATIENT
  Age: 75 None
  Sex: Male

DRUGS (1)
  1. ARIXTRA [Suspect]
     Indication: THROMBOSIS PROPHYLAXIS
     Route: 058
     Dates: start: 20120430, end: 20120527

REACTIONS (4)
  - Haemarthrosis [Recovered/Resolved]
  - Joint effusion [Unknown]
  - Arthralgia [Unknown]
  - Inflammation [Unknown]
